FAERS Safety Report 7921970-0 (Version None)
Quarter: 2011Q4

REPORT INFORMATION
  Report Type: 
  Country: None (occurrence: None)
  Receive Date: 20111117
  Receipt Date: 20111109
  Transmission Date: 20120403
  Serious: Yes (Other)
  Sender: FDA-Public Use
  Company Number: JP-B.I. PHARMACEUTICALS,INC./RIDGEFIELD-2011-BP-00679NB

PATIENT
  Sex: Male
  Weight: 63.2 kg

DRUGS (10)
  1. CILNIDIPINE [Concomitant]
     Dosage: 10 MG
     Route: 065
     Dates: start: 20100301
  2. LANSOPRAZOLE [Concomitant]
     Dosage: 15 MG
     Route: 048
     Dates: start: 20100301
  3. DOXAZOSIN MESYLATE [Concomitant]
     Dosage: 2 MG
     Route: 065
     Dates: start: 20100301
  4. ASVERIN [Concomitant]
     Indication: PRODUCTIVE COUGH
     Dosage: 30 MG
     Route: 065
     Dates: start: 20100630, end: 20100821
  5. METHISTA [Concomitant]
     Indication: PRODUCTIVE COUGH
     Dosage: 75 MG
     Route: 065
     Dates: start: 20100630, end: 20100821
  6. NORVASC [Concomitant]
     Dosage: 10 MG
     Route: 048
     Dates: start: 20100301
  7. LOSARTAN POTASSIUM [Concomitant]
     Dosage: 50 MG
     Route: 048
     Dates: start: 20100301
  8. ALFAROL [Concomitant]
     Dosage: 1 MCG
     Route: 048
     Dates: start: 20100301
  9. BI-SIFROL TABLETS [Suspect]
     Indication: RESTLESS LEGS SYNDROME
     Dosage: 0.5 MG
     Route: 048
     Dates: start: 20100324, end: 20101013
  10. RENAGEL [Concomitant]
     Dosage: 3000 MG
     Route: 048
     Dates: start: 20100301

REACTIONS (2)
  - RENAL CYST HAEMORRHAGE [None]
  - INTERSTITIAL LUNG DISEASE [None]
